FAERS Safety Report 18583924 (Version 1)
Quarter: 2020Q4

REPORT INFORMATION
  Report Type: Spontaneous
  Country: AU (occurrence: AU)
  Receive Date: 20201207
  Receipt Date: 20201207
  Transmission Date: 20210114
  Serious: Yes (Other)
  Sender: FDA-Public Use
  Company Number: AU-ALKEM LABORATORIES LIMITED-AU-ALKEM-2020-03047

PATIENT
  Age: 16 Year
  Sex: Male

DRUGS (2)
  1. OLANZAPINE. [Suspect]
     Active Substance: OLANZAPINE
     Indication: PRODUCT USED FOR UNKNOWN INDICATION
     Dosage: UNK
     Route: 065
  2. INVEGA SUSTENNA [Suspect]
     Active Substance: PALIPERIDONE PALMITATE
     Indication: PRODUCT USED FOR UNKNOWN INDICATION
     Dosage: UNK
     Route: 065

REACTIONS (11)
  - Pyrexia [Unknown]
  - Restlessness [Unknown]
  - Inappropriate schedule of product administration [Unknown]
  - Social avoidant behaviour [Unknown]
  - Tardive dyskinesia [Unknown]
  - Sedation [Unknown]
  - Parkinsonism [Unknown]
  - Off label use [Unknown]
  - Product use issue [Unknown]
  - Gait disturbance [Unknown]
  - Injection site reaction [Unknown]
